FAERS Safety Report 20580702 (Version 2)
Quarter: 2022Q2

REPORT INFORMATION
  Report Type: Spontaneous
  Country: US (occurrence: US)
  Receive Date: 20220311
  Receipt Date: 20220531
  Transmission Date: 20220721
  Serious: No
  Sender: FDA-Public Use
  Company Number: US-NOVARTISTESTPH-NVSC2022US056329

PATIENT

DRUGS (1)
  1. ILARIS [Suspect]
     Active Substance: CANAKINUMAB
     Indication: Still^s disease
     Dosage: UNK UNK, QMO
     Route: 058

REACTIONS (4)
  - Rash [Unknown]
  - Arthralgia [Unknown]
  - General physical health deterioration [Unknown]
  - Fatigue [Unknown]
